FAERS Safety Report 8016803-0 (Version None)
Quarter: 2012Q1

REPORT INFORMATION
  Report Type: 
  Country: None (occurrence: None)
  Receive Date: 20120102
  Receipt Date: 20111222
  Transmission Date: 20120608
  Serious: Yes (Life-Threatening, Hospitalization, Other)
  Sender: FDA-Public Use
  Company Number: GB-BRISTOL-MYERS SQUIBB COMPANY-16319246

PATIENT
  Age: 54 Year
  Sex: Male

DRUGS (6)
  1. RAMIPRIL [Suspect]
     Indication: HYPERTENSION
     Route: 048
  2. ATORVASTATIN [Concomitant]
     Indication: HYPERCHOLESTEROLAEMIA
  3. FUROSEMIDE [Concomitant]
     Indication: HYPERTENSION
  4. METFORMIN HCL [Suspect]
     Indication: DIABETES MELLITUS MANAGEMENT
     Route: 048
  5. ACETYLSALICYLIC ACID SRT [Concomitant]
     Route: 048
  6. BISOPROLOL [Concomitant]
     Indication: HYPERTENSION

REACTIONS (2)
  - SEPSIS [None]
  - RENAL FAILURE ACUTE [None]
